FAERS Safety Report 5202016-4 (Version None)
Quarter: 2007Q1

REPORT INFORMATION
  Report Type: 
  Country: None (occurrence: None)
  Receive Date: 20070109
  Receipt Date: 20061228
  Transmission Date: 20070707
  Serious: Yes (Hospitalization)
  Sender: FDA-Public Use
  Company Number: DE-JNJFOC-20061101578

PATIENT
  Age: 45 Year
  Sex: Male

DRUGS (3)
  1. HALDOL [Suspect]
     Indication: DRUG USE FOR UNKNOWN INDICATION
     Route: 048
  2. CLEXANE [Concomitant]
     Route: 058
  3. AKINETON [Concomitant]
     Route: 048

REACTIONS (1)
  - RHABDOMYOLYSIS [None]
